FAERS Safety Report 24703063 (Version 1)
Quarter: 2024Q4

REPORT INFORMATION
  Report Type: Spontaneous
  Country: RU (occurrence: RU)
  Receive Date: 20241205
  Receipt Date: 20241205
  Transmission Date: 20250114
  Serious: Yes (Other)
  Sender: PFIZER
  Company Number: RU-PFIZER INC-PV202400156606

PATIENT
  Age: 55 Year
  Sex: Male

DRUGS (3)
  1. BESPONSA [Suspect]
     Active Substance: INOTUZUMAB OZOGAMICIN
     Indication: Acute lymphocytic leukaemia
     Dosage: 0.8 MG/M2, CYCLIC (1ST DAY; FIRST CYCLE 3-4 WEEKS)
     Route: 030
     Dates: start: 202404, end: 202404
  2. BESPONSA [Suspect]
     Active Substance: INOTUZUMAB OZOGAMICIN
     Dosage: 0.5 MG/M2, CYCLIC (8TH DAY; FIRST CYCLE 3-4 WEEKS)
     Route: 030
     Dates: start: 202404, end: 202404
  3. BESPONSA [Suspect]
     Active Substance: INOTUZUMAB OZOGAMICIN
     Dosage: 0.5 MG/M2, CYCLIC (15TH DAY; FIRST CYCLE 3-4 WEEKS)
     Route: 030
     Dates: start: 202404, end: 202404

REACTIONS (5)
  - Anaemia [Recovered/Resolved]
  - Thrombocytopenia [Recovered/Resolved]
  - Cytomegalovirus infection [Recovered/Resolved]
  - Graft versus host disease in skin [Recovered/Resolved]
  - Neurotoxicity [Recovered/Resolved]
